FAERS Safety Report 6085868-8 (Version None)
Quarter: 2009Q1

REPORT INFORMATION
  Report Type: 
  Country: None (occurrence: None)
  Receive Date: 20090220
  Receipt Date: 20090219
  Transmission Date: 20090719
  Serious: Yes (Hospitalization)
  Sender: FDA-Public Use
  Company Number: B0559867A

PATIENT
  Age: 31 Year
  Sex: Female

DRUGS (6)
  1. AUGMENTIN '125' [Suspect]
     Indication: SINUSITIS
     Route: 048
     Dates: start: 20080829, end: 20080903
  2. ABACAVIR SULFATE/LAMIVUDINE [Suspect]
     Indication: DRUG USE FOR UNKNOWN INDICATION
     Dosage: 1UNIT PER DAY
     Route: 048
     Dates: start: 20080829, end: 20080905
  3. BACTRIM DS [Suspect]
     Indication: DRUG USE FOR UNKNOWN INDICATION
     Dosage: 1TAB PER DAY
     Route: 048
     Dates: start: 20080806, end: 20080905
  4. REYATAZ [Suspect]
     Indication: DRUG USE FOR UNKNOWN INDICATION
     Dosage: 2UNIT PER DAY
     Route: 048
     Dates: start: 20080829, end: 20080905
  5. NORVIR [Suspect]
     Indication: DRUG USE FOR UNKNOWN INDICATION
     Dosage: 100MG PER DAY
     Route: 048
     Dates: start: 20080829, end: 20080905
  6. RULID [Concomitant]
     Route: 065
     Dates: start: 20080903

REACTIONS (4)
  - MUCOSAL INFLAMMATION [None]
  - PYREXIA [None]
  - RASH [None]
  - RASH PRURITIC [None]
